FAERS Safety Report 9887245 (Version 1)
Quarter: 2014Q1

REPORT INFORMATION
  Report Type: Spontaneous
  Country: US (occurrence: US)
  Receive Date: 20140211
  Receipt Date: 20140211
  Transmission Date: 20141002
  Serious: No
  Sender: FDA-Public Use
  Company Number: US-BIOGENIDEC-2014BI010155

PATIENT
  Sex: Female

DRUGS (6)
  1. TECFIDERA [Suspect]
     Indication: MULTIPLE SCLEROSIS
     Route: 048
     Dates: start: 201311
  2. ZINC [Concomitant]
  3. IMODIUM A-D [Concomitant]
  4. CLARITIN [Concomitant]
  5. BIOTIN 5000 [Concomitant]
  6. EQL CHILDRENS VITAMIN D G [Concomitant]

REACTIONS (4)
  - Dizziness [Not Recovered/Not Resolved]
  - Infection [Recovered/Resolved]
  - Fatigue [Not Recovered/Not Resolved]
  - Flushing [Not Recovered/Not Resolved]
